FAERS Safety Report 26075132 (Version 1)
Quarter: 2025Q4

REPORT INFORMATION
  Report Type: Other
  Country: US (occurrence: US)
  Receive Date: 20251121
  Receipt Date: 20251121
  Transmission Date: 20260118
  Serious: No
  Sender: VERASTEM
  Company Number: US-VERASTEM-250924US-AFCPK-00619

PATIENT

DRUGS (2)
  1. AVMAPKI FAKZYNJA CO-PACK [Suspect]
     Active Substance: AVUTOMETINIB POTASSIUM\DEFACTINIB HYDROCHLORIDE
     Indication: Ovarian cancer
     Dosage: 3 AVMAPKI CAPSULES ON MON AND THU/ 1 FAKZYNJA TAB DAILY FOR 3 OF 4 WEEKS
     Route: 048
     Dates: start: 202507
  2. AVMAPKI FAKZYNJA CO-PACK [Suspect]
     Active Substance: AVUTOMETINIB POTASSIUM\DEFACTINIB HYDROCHLORIDE
     Dosage: AVMAPKI 2 PILS, TWICE A WEEK (PREVIOUSLY  3)/ 1 FAKZYNJA TAB DAILY FOR 3 OF 4 WEEKS
     Route: 048

REACTIONS (2)
  - Skin reaction [Unknown]
  - Rash [Unknown]
